FAERS Safety Report 23838687 (Version 1)
Quarter: 2024Q2

REPORT INFORMATION
  Report Type: Spontaneous
  Country: DE (occurrence: DE)
  Receive Date: 20240509
  Receipt Date: 20240509
  Transmission Date: 20240716
  Serious: Yes (Other)
  Sender: FDA-Public Use
  Company Number: DE-BAUSCHBL-2024BNL026558

PATIENT
  Age: 50 Year
  Sex: Female

DRUGS (1)
  1. BROMFENAC SODIUM [Suspect]
     Active Substance: BROMFENAC SODIUM
     Indication: Postoperative care
     Route: 065
     Dates: start: 20240129

REACTIONS (4)
  - Macular oedema [Unknown]
  - Pain [Unknown]
  - Ill-defined disorder [Unknown]
  - Product prescribing issue [Unknown]

NARRATIVE: CASE EVENT DATE: 20240101
